FAERS Safety Report 6083873-9 (Version None)
Quarter: 2009Q1

REPORT INFORMATION
  Report Type: 
  Country: None (occurrence: None)
  Receive Date: 20090217
  Receipt Date: 20090205
  Transmission Date: 20090719
  Serious: Yes (Other)
  Sender: FDA-Public Use
  Company Number: 2009-00486

PATIENT

DRUGS (1)
  1. VELCADE [Suspect]
     Indication: ADENOCARCINOMA
     Dosage: IV BOLUS
     Route: 040

REACTIONS (1)
  - VASCULITIS [None]
